FAERS Safety Report 11602812 (Version 1)
Quarter: 2015Q4

REPORT INFORMATION
  Report Type: Spontaneous
  Country: US (occurrence: US)
  Receive Date: 20151006
  Receipt Date: 20151006
  Transmission Date: 20160304
  Serious: No
  Sender: FDA-Public Use
  Company Number: US-AMGEN-USASP2015086949

PATIENT
  Age: 77 Year
  Sex: Female

DRUGS (1)
  1. PROLIA [Suspect]
     Active Substance: DENOSUMAB
     Indication: OSTEOPOROSIS POSTMENOPAUSAL
     Dosage: UNK, Q6MO
     Route: 065
     Dates: start: 201201

REACTIONS (6)
  - Back pain [Unknown]
  - Insomnia [Unknown]
  - Tooth fracture [Unknown]
  - Pain in extremity [Unknown]
  - Arthritis [Unknown]
  - Weight decreased [Unknown]

NARRATIVE: CASE EVENT DATE: 201501
